FAERS Safety Report 7343533-0 (Version None)
Quarter: 2011Q1

REPORT INFORMATION
  Report Type: 
  Country: None (occurrence: None)
  Receive Date: 20110310
  Receipt Date: 20100413
  Transmission Date: 20110831
  Serious: No
  Sender: FDA-Public Use
  Company Number: A0854747A

PATIENT
  Age: 50 Year
  Sex: Female

DRUGS (1)
  1. NICORETTE [Suspect]
     Dates: start: 20100413, end: 20100413

REACTIONS (5)
  - RETCHING [None]
  - NAUSEA [None]
  - OROPHARYNGEAL DISCOMFORT [None]
  - CHOKING SENSATION [None]
  - OROPHARYNGEAL PAIN [None]
